FAERS Safety Report 11175143 (Version 2)
Quarter: 2015Q2

REPORT INFORMATION
  Report Type: Spontaneous
  Country: DK (occurrence: JP)
  Receive Date: 20150609
  Receipt Date: 20150617
  Transmission Date: 20150821
  Serious: Yes (Hospitalization)
  Sender: FDA-Public Use
  Company Number: JP-FRI-1000077171

PATIENT
  Age: 24 Year
  Sex: Female

DRUGS (4)
  1. LEXAPRO [Suspect]
     Active Substance: ESCITALOPRAM OXALATE
     Indication: CONVERSION DISORDER
     Dosage: 10 MG
     Route: 048
     Dates: start: 20150304, end: 20150525
  2. AMOXAN [Suspect]
     Active Substance: AMOXAPINE
     Indication: PAIN
     Dosage: 50 MG
     Route: 048
     Dates: start: 20150519, end: 20150522
  3. SAIKOKARYUKOTSUBOREITO [Concomitant]
     Active Substance: HERBALS
     Indication: CONVERSION DISORDER
     Route: 048
     Dates: start: 20141201
  4. MEILAX [Concomitant]
     Active Substance: ETHYL LOFLAZEPATE
     Indication: CONVERSION DISORDER
     Route: 048
     Dates: start: 20141216

REACTIONS (2)
  - Off label use [Recovered/Resolved]
  - Seizure [Recovered/Resolved]

NARRATIVE: CASE EVENT DATE: 20150523
